FAERS Safety Report 4628119-0 (Version None)
Quarter: 2005Q2

REPORT INFORMATION
  Report Type: 
  Country: None (occurrence: None)
  Receive Date: 20050406
  Receipt Date: 20050323
  Transmission Date: 20051028
  Serious: Yes (Death, Life-Threatening)
  Sender: FDA-Public Use
  Company Number: JP-GLAXOSMITHKLINE-B0375958A

PATIENT
  Age: 85 Year
  Sex: Male

DRUGS (4)
  1. MODACIN [Suspect]
     Indication: BRONCHITIS
     Dosage: 1G TWICE PER DAY
     Route: 048
     Dates: start: 20050226, end: 20050301
  2. PANSPORIN [Concomitant]
     Indication: BRONCHITIS
     Dosage: 1G PER DAY
     Route: 042
     Dates: start: 20050219, end: 20050223
  3. UNASYN [Concomitant]
     Indication: BRONCHITIS
     Dosage: 6G PER DAY
     Route: 042
     Dates: start: 20050224, end: 20050225
  4. MAXIPIME [Concomitant]
     Indication: BRONCHITIS
     Dosage: 2G PER DAY
     Route: 042
     Dates: start: 20050302, end: 20050317

REACTIONS (3)
  - ECCHYMOSIS [None]
  - PLATELET COUNT DECREASED [None]
  - WHITE BLOOD CELL COUNT DECREASED [None]
